FAERS Safety Report 9190598 (Version 1)
Quarter: 2013Q1

REPORT INFORMATION
  Report Type: Spontaneous
  Country: US (occurrence: None)
  Receive Date: 20130322
  Receipt Date: 20130322
  Transmission Date: 20140127
  Serious: Yes (Other)
  Sender: FDA-Public Use
  Company Number: 1303-349

PATIENT
  Sex: Female

DRUGS (1)
  1. EYELEA (AFLIBERCEPT) (AFLIBERCEPT) [Suspect]
     Route: 031

REACTIONS (4)
  - Visual acuity reduced [None]
  - Hypotony of eye [None]
  - Chorioretinal disorder [None]
  - Retinal detachment [None]
